FAERS Safety Report 4856191-1 (Version None)
Quarter: 2005Q4

REPORT INFORMATION
  Report Type: 
  Country: None (occurrence: None)
  Receive Date: 20051216
  Receipt Date: 20030605
  Transmission Date: 20060501
  Serious: Yes (Hospitalization)
  Sender: FDA-Public Use
  Company Number: US-MERCK-0306USA00634

PATIENT
  Age: 40 Year
  Sex: Female
  Weight: 55 kg

DRUGS (3)
  1. VIOXX [Suspect]
     Indication: ARTHRITIS
     Route: 048
     Dates: start: 20001026, end: 20010714
  2. VIOXX [Suspect]
     Indication: INFLAMMATION
     Route: 048
     Dates: start: 20001026, end: 20010714
  3. PREMARIN [Concomitant]
     Route: 065

REACTIONS (7)
  - DEPRESSIVE SYMPTOM [None]
  - GASTROOESOPHAGEAL REFLUX DISEASE [None]
  - HYPERTENSION [None]
  - MIGRAINE [None]
  - MUSCULOSKELETAL STIFFNESS [None]
  - SWELLING [None]
  - VISION BLURRED [None]
